FAERS Safety Report 16229693 (Version 1)
Quarter: 2019Q2

REPORT INFORMATION
  Report Type: Spontaneous
  Country: BR (occurrence: BR)
  Receive Date: 20190423
  Receipt Date: 20190423
  Transmission Date: 20190711
  Serious: Yes (Other)
  Sender: FDA-Public Use
  Company Number: BR-ASTRAZENECA-2019SE58987

PATIENT
  Sex: Male

DRUGS (1)
  1. XIGDUO XR [Suspect]
     Active Substance: DAPAGLIFLOZIN PROPANEDIOL\METFORMIN HYDROCHLORIDE
     Indication: ACUTE PAINFUL NEUROPATHY OF RAPID GLYCAEMIC CONTROL
     Dosage: 10/1000 MG
     Route: 048
     Dates: start: 201804

REACTIONS (3)
  - Genital erythema [Recovering/Resolving]
  - Genital burning sensation [Recovering/Resolving]
  - Fungal infection [Unknown]
